FAERS Safety Report 5816652-5 (Version None)
Quarter: 2008Q3

REPORT INFORMATION
  Report Type: 
  Country: None (occurrence: None)
  Receive Date: 20080721
  Receipt Date: 20080711
  Transmission Date: 20090109
  Serious: Yes (Other)
  Sender: FDA-Public Use
  Company Number: ZW-TYCO HEALTHCARE/MALLINCKRODT-T200801154

PATIENT

DRUGS (1)
  1. LIQUID BAROSPERSE [Suspect]
     Dosage: 50 ML, UNK

REACTIONS (1)
  - VOLVULUS [None]
